FAERS Safety Report 5799475-5 (Version None)
Quarter: 2008Q3

REPORT INFORMATION
  Report Type: 
  Country: None (occurrence: None)
  Receive Date: 20080701
  Receipt Date: 20080701
  Transmission Date: 20090109
  Serious: Yes (Hospitalization)
  Sender: FDA-Public Use
  Company Number: None

PATIENT
  Sex: Female
  Weight: 66.36 kg

DRUGS (1)
  1. CISPLATIN [Suspect]
     Dosage: 362 MG
     Dates: end: 20080428

REACTIONS (3)
  - DECREASED APPETITE [None]
  - DYSPHAGIA [None]
  - PAIN [None]
